FAERS Safety Report 20911006 (Version 3)
Quarter: 2022Q3

REPORT INFORMATION
  Report Type: Report from Study
  Country: AR (occurrence: AR)
  Receive Date: 20220603
  Receipt Date: 20220916
  Transmission Date: 20221027
  Serious: Yes (Hospitalization, Other)
  Sender: FDA-Public Use
  Company Number: AR-TAKEDA-2022TUS035105

PATIENT
  Age: 71 Year
  Sex: Male

DRUGS (4)
  1. HUMAN IMMUNOGLOBULIN G\HYALURONIDASE RECOMBINANT HUMAN [Suspect]
     Active Substance: HUMAN IMMUNOGLOBULIN G\HYALURONIDASE RECOMBINANT HUMAN
     Indication: Product used for unknown indication
     Dosage: 400 MILLIGRAM/KILOGRAM
     Route: 065
     Dates: start: 20220428
  2. HUMAN IMMUNOGLOBULIN G\HYALURONIDASE RECOMBINANT HUMAN [Suspect]
     Active Substance: HUMAN IMMUNOGLOBULIN G\HYALURONIDASE RECOMBINANT HUMAN
     Dosage: 400 MILLIGRAM/KILOGRAM
     Route: 058
     Dates: start: 20220428
  3. HUMAN IMMUNOGLOBULIN G\HYALURONIDASE RECOMBINANT HUMAN [Suspect]
     Active Substance: HUMAN IMMUNOGLOBULIN G\HYALURONIDASE RECOMBINANT HUMAN
     Dosage: 400 MILLIGRAM/KILOGRAM, Q4WEEKS
     Route: 058
     Dates: start: 20220428, end: 20220808
  4. HUMAN IMMUNOGLOBULIN G\HYALURONIDASE RECOMBINANT HUMAN [Suspect]
     Active Substance: HUMAN IMMUNOGLOBULIN G\HYALURONIDASE RECOMBINANT HUMAN
     Dosage: 400 MILLIGRAM/KILOGRAM, Q4WEEKS
     Route: 058
     Dates: start: 20220428, end: 20220808

REACTIONS (5)
  - Cytomegalovirus gastrointestinal infection [Recovering/Resolving]
  - Adverse event [Recovering/Resolving]
  - Crohn^s disease [Recovering/Resolving]
  - Gastrointestinal disorder [Recovering/Resolving]
  - Infusion site discomfort [Recovering/Resolving]

NARRATIVE: CASE EVENT DATE: 20220506
